FAERS Safety Report 10757092 (Version 1)
Quarter: 2015Q1

REPORT INFORMATION
  Report Type: Spontaneous
  Country: IN (occurrence: IN)
  Receive Date: 20150203
  Receipt Date: 20150203
  Transmission Date: 20150721
  Serious: Yes (Other)
  Sender: FDA-Public Use
  Company Number: IN-AUROBINDO-AUR-APL-2015-00822

PATIENT
  Age: 38 Year
  Sex: Female

DRUGS (1)
  1. TOPIRAMATE TABLETS 25 MG [Suspect]
     Active Substance: TOPIRAMATE
     Indication: PRODUCT USED FOR UNKNOWN INDICATION
     Dosage: 25 MG, TWO TIMES A DAY
     Route: 065

REACTIONS (13)
  - Eye pain [Unknown]
  - Ocular hyperaemia [Unknown]
  - Optic disc hyperaemia [Recovered/Resolved]
  - Visual impairment [Recovering/Resolving]
  - Iridocyclitis [Recovered/Resolved]
  - Choroidal detachment [Recovered/Resolved]
  - Iris adhesions [Recovered/Resolved]
  - Corneal opacity [Recovered/Resolved]
  - Conjunctival hyperaemia [Recovered/Resolved]
  - Macular oedema [Recovered/Resolved]
  - Lacrimation increased [Unknown]
  - Corneal disorder [Recovered/Resolved]
  - Headache [Unknown]
